FAERS Safety Report 9447956 (Version 2)
Quarter: 2013Q3

REPORT INFORMATION
  Report Type: Spontaneous
  Country: CR (occurrence: CR)
  Receive Date: 20130808
  Receipt Date: 20130812
  Transmission Date: 20140515
  Serious: Yes (Hospitalization, Other)
  Sender: FDA-Public Use
  Company Number: PHHY2013CR085030

PATIENT
  Age: 41 Year
  Sex: Male

DRUGS (4)
  1. VOLTAREN [Suspect]
     Indication: MUSCULOSKELETAL PAIN
     Dosage: 1 DF, UNK
     Route: 030
     Dates: start: 20130625
  2. COZAAR [Concomitant]
     Indication: HYPERTENSION
     Dosage: 100 MG, QD
     Route: 048
  3. IMBYS [Concomitant]
     Dosage: 500 MG, QD
     Route: 048
     Dates: start: 20130625, end: 20130628
  4. TALERDIN [Concomitant]
     Dosage: 10 MG, QD
     Route: 048
     Dates: start: 20130625

REACTIONS (5)
  - Hypertensive crisis [Recovered/Resolved]
  - Blood pressure increased [Recovered/Resolved]
  - Drug interaction [Unknown]
  - Dizziness [Unknown]
  - Headache [Unknown]
